FAERS Safety Report 4373632-7 (Version None)
Quarter: 2004Q1

REPORT INFORMATION
  Report Type: 
  Country: None (occurrence: None)
  Receive Date: 20040305
  Receipt Date: 20031229
  Transmission Date: 20041129
  Serious: Yes (Other)
  Sender: FDA-Public Use
  Company Number: 2003UW17218

PATIENT
  Age: 74 Year
  Sex: Female
  Weight: 108.8633 kg

DRUGS (4)
  1. CRESTOR [Suspect]
     Indication: HYPERCHOLESTEROLAEMIA
     Dosage: 10 MG QD PO
     Route: 048
     Dates: start: 20031201
  2. LEVOXYL [Concomitant]
  3. TWO DRUGS USED FOR DIABETICS [Concomitant]
  4. TWO DRUGS USED FOR HIGH BLOOD PRESSURE [Concomitant]

REACTIONS (1)
  - DRY MOUTH [None]
